FAERS Safety Report 5578067-7 (Version None)
Quarter: 2007Q4

REPORT INFORMATION
  Report Type: 
  Country: None (occurrence: None)
  Receive Date: 20071227
  Receipt Date: 20071219
  Transmission Date: 20080405
  Serious: Yes (Death, Hospitalization)
  Sender: FDA-Public Use
  Company Number: 144-C5013-07111410

PATIENT
  Age: 56 Year
  Sex: Male
  Weight: 55 kg

DRUGS (8)
  1. CC-5013 (LENALIDOMIDE) (CAPSULES) [Suspect]
     Indication: MULTIPLE MYELOMA
     Dosage: 25 MG, DAILY X21 DAYS, ORAL;
     Route: 048
     Dates: start: 20071116, end: 20071125
  2. CC-5013 (LENALIDOMIDE) (CAPSULES) [Suspect]
     Indication: MULTIPLE MYELOMA
     Dosage: 25 MG, DAILY X21 DAYS, ORAL;
     Route: 048
     Dates: start: 20071215, end: 20071217
  3. DEXAMETHASONE TAB [Suspect]
     Indication: MULTIPLE MYELOMA
     Dosage: 40 MG, X4 DAYS EVERY 15 DAYS, ORAL;  40 MG DAILY EVERY 15 DAYS
     Route: 048
     Dates: start: 20071116, end: 20071125
  4. DEXAMETHASONE TAB [Suspect]
     Indication: MULTIPLE MYELOMA
     Dosage: 40 MG, X4 DAYS EVERY 15 DAYS, ORAL;  40 MG DAILY EVERY 15 DAYS
     Route: 048
     Dates: start: 20071215, end: 20071217
  5. G-CSF (GRANULOCYTE COLONY STIMULATING FACTOR) [Concomitant]
  6. VENTOLIN [Concomitant]
  7. ATORVENT (IPRATROPIUM BROMIDE) [Concomitant]
  8. CODEISAN (DOCEINE PHOSPHATE) [Concomitant]

REACTIONS (16)
  - ACUTE PULMONARY OEDEMA [None]
  - BACK PAIN [None]
  - BLOOD CREATININE INCREASED [None]
  - BLOOD UREA INCREASED [None]
  - BONE DISORDER [None]
  - CARDIAC FAILURE [None]
  - FEBRILE NEUTROPENIA [None]
  - HAEMOGLOBIN DECREASED [None]
  - HAEMOPTYSIS [None]
  - LEGIONELLA INFECTION [None]
  - PLATELET COUNT DECREASED [None]
  - PNEUMONIA LEGIONELLA [None]
  - RED BLOOD CELL COUNT DECREASED [None]
  - SINUS TACHYCARDIA [None]
  - TACHYPNOEA [None]
  - WHITE BLOOD CELL COUNT DECREASED [None]
